FAERS Safety Report 13454592 (Version 1)
Quarter: 2017Q2

REPORT INFORMATION
  Report Type: Spontaneous
  Country: US (occurrence: US)
  Receive Date: 20170418
  Receipt Date: 20170418
  Transmission Date: 20170830
  Serious: No
  Sender: FDA-Public Use
  Company Number: US-ALLERGAN-1701228US

PATIENT
  Age: 82 Year
  Sex: Female

DRUGS (2)
  1. DORZOLAMIDE [Concomitant]
     Active Substance: DORZOLAMIDE
     Dosage: UNK
  2. LUMIGAN [Suspect]
     Active Substance: BIMATOPROST
     Indication: GLAUCOMA
     Dosage: 2 GTT, QD
     Route: 047
     Dates: start: 1997

REACTIONS (5)
  - Hand deformity [Not Recovered/Not Resolved]
  - Product use issue [Unknown]
  - Arthritis [Not Recovered/Not Resolved]
  - Eating disorder [Not Recovered/Not Resolved]
  - Familial tremor [Not Recovered/Not Resolved]
